FAERS Safety Report 4990403-9 (Version None)
Quarter: 2006Q2

REPORT INFORMATION
  Report Type: 
  Country: None (occurrence: None)
  Receive Date: 20060427
  Receipt Date: 20060419
  Transmission Date: 20061013
  Serious: Yes (Death)
  Sender: FDA-Public Use
  Company Number: 06H-163-0306516-00

PATIENT
  Age: 60 Year
  Sex: Male
  Weight: 107.9561 kg

DRUGS (3)
  1. MORPHINE SULFATE [Suspect]
     Indication: PAIN
  2. TRAZODONE HCL [Concomitant]
  3. EYE DROPS [Concomitant]

REACTIONS (8)
  - ACUTE CORONARY SYNDROME [None]
  - ACUTE MYOCARDIAL INFARCTION [None]
  - AORTIC ARTERIOSCLEROSIS [None]
  - ARTERIOSCLEROSIS [None]
  - CORONARY ARTERY DISEASE [None]
  - DRUG TOXICITY [None]
  - HYPERTENSIVE HEART DISEASE [None]
  - VENTRICULAR HYPERTROPHY [None]
